FAERS Safety Report 11743945 (Version 2)
Quarter: 2016Q4

REPORT INFORMATION
  Report Type: Spontaneous
  Country: IT (occurrence: IT)
  Receive Date: 20151116
  Receipt Date: 20161024
  Transmission Date: 20170206
  Serious: Yes (Other)
  Sender: FDA-Public Use
  Company Number: IT-PFIZER INC-2015389639

PATIENT
  Age: 22 Year
  Sex: Male

DRUGS (4)
  1. PREDNISONE. [Suspect]
     Active Substance: PREDNISONE
     Dosage: MINIMUM 30 MG, DAILY
     Route: 048
     Dates: start: 200206, end: 200501
  2. NEOMYCIN [Suspect]
     Active Substance: NEOMYCIN
     Dosage: UNK
     Route: 031
     Dates: start: 200206, end: 200501
  3. TRIAMCINOLONE [Suspect]
     Active Substance: TRIAMCINOLONE
  4. METHYLPREDNISOLONE SODIUM SUCCINATE. [Suspect]
     Active Substance: METHYLPREDNISOLONE SODIUM SUCCINATE
     Dosage: UNK
     Route: 042
     Dates: start: 200206, end: 200501

REACTIONS (19)
  - Osteoporosis [Unknown]
  - Uveitis [None]
  - Pulmonary tuberculosis [None]
  - Cataract [None]
  - Angina pectoris [None]
  - Arthralgia [None]
  - Leukopenia [None]
  - Ureterolithiasis [None]
  - Hypertension [None]
  - Drug ineffective [Unknown]
  - Pneumonia [None]
  - Spinal fracture [Unknown]
  - Nephropathy toxic [None]
  - Erythema nodosum [None]
  - Cataract subcapsular [None]
  - Macular ischaemia [None]
  - Glaucoma [None]
  - Pneumonia legionella [None]
  - Coronary artery stenosis [None]
